FAERS Safety Report 4694662-1 (Version None)
Quarter: 2005Q2

REPORT INFORMATION
  Report Type: 
  Country: None (occurrence: None)
  Receive Date: 20050620
  Receipt Date: 20050616
  Transmission Date: 20051028
  Serious: Yes (Hospitalization, Other)
  Sender: FDA-Public Use
  Company Number: US-GLAXOSMITHKLINE-A0562979A

PATIENT
  Sex: Female

DRUGS (1)
  1. IMITREX [Suspect]
     Indication: MIGRAINE
     Dosage: 50MG SEE DOSAGE TEXT
     Route: 048
     Dates: start: 19940101

REACTIONS (5)
  - CYSTITIS INTERSTITIAL [None]
  - METRORRHAGIA [None]
  - POLLAKIURIA [None]
  - SALPINGITIS [None]
  - STRESS INCONTINENCE [None]
